FAERS Safety Report 10299973 (Version 1)
Quarter: 2014Q3

REPORT INFORMATION
  Report Type: Report from Study
  Country: RS (occurrence: RS)
  Receive Date: 20140711
  Receipt Date: 20140711
  Transmission Date: 20150326
  Serious: Yes (Other)
  Sender: FDA-Public Use
  Company Number: RS-BAXTER-2014BAX036850

PATIENT
  Sex: Male

DRUGS (10)
  1. PREDNISONE. [Suspect]
     Active Substance: PREDNISONE
     Indication: TESTIS CANCER
  2. VINCRISTINE [Suspect]
     Active Substance: VINCRISTINE
     Indication: TESTIS CANCER
  3. RITUXIMAB [Suspect]
     Active Substance: RITUXIMAB
     Indication: LYMPHOMA
     Route: 065
  4. ENDOXAN 1 G [Suspect]
     Active Substance: CYCLOPHOSPHAMIDE
     Indication: LYMPHOMA
     Route: 065
  5. ENDOXAN 1 G [Suspect]
     Active Substance: CYCLOPHOSPHAMIDE
     Indication: TESTIS CANCER
  6. DOXORUBICIN [Suspect]
     Active Substance: DOXORUBICIN
     Indication: TESTIS CANCER
  7. RITUXIMAB [Suspect]
     Active Substance: RITUXIMAB
     Indication: TESTIS CANCER
  8. DOXORUBICIN [Suspect]
     Active Substance: DOXORUBICIN
     Indication: LYMPHOMA
     Route: 065
  9. VINCRISTINE [Suspect]
     Active Substance: VINCRISTINE
     Indication: LYMPHOMA
     Route: 065
  10. PREDNISONE. [Suspect]
     Active Substance: PREDNISONE
     Indication: LYMPHOMA
     Route: 065

REACTIONS (1)
  - Disease progression [Unknown]
